FAERS Safety Report 9080303 (Version 1)
Quarter: 2013Q1

REPORT INFORMATION
  Report Type: Report from Study
  Country: US (occurrence: US)
  Receive Date: 20130130
  Receipt Date: 20130130
  Transmission Date: 20140127
  Serious: No
  Sender: FDA-Public Use
  Company Number: US-ABBOTT-12P-163-0947756-00

PATIENT
  Age: 50 Year
  Sex: Male

DRUGS (21)
  1. HUMIRA 40 MG/0.8 ML PEN [Suspect]
     Indication: RHEUMATOID ARTHRITIS
     Dates: start: 20120604
  2. NASONEX [Concomitant]
     Indication: PRODUCT USED FOR UNKNOWN INDICATION
     Dosage: 2 SPRAYS EACH NOSTIL DAILY
  3. VITAMIN D [Concomitant]
     Indication: PRODUCT USED FOR UNKNOWN INDICATION
  4. OMEPRAZOLE [Concomitant]
     Indication: DYSPEPSIA
  5. ENALAPRIL [Concomitant]
     Indication: HYPERTENSION
  6. UNKNOWN BLOOD PRESSURE MEDICATION [Concomitant]
     Indication: PRODUCT USED FOR UNKNOWN INDICATION
     Dosage: DAILY
  7. METHOTREXATE [Concomitant]
     Indication: PRODUCT USED FOR UNKNOWN INDICATION
     Dosage: 2.5MG - 10 TABS WEEKLY
  8. ALLOPURINOL [Concomitant]
     Indication: GOUT
  9. THEOPHYLLINE [Concomitant]
     Indication: ASTHMA
  10. SINGULAR [Concomitant]
     Indication: ASTHMA
  11. INDOMETHACIN [Concomitant]
     Indication: PRODUCT USED FOR UNKNOWN INDICATION
  12. LATANOPROST [Concomitant]
     Indication: UVEITIS
     Dosage: 1 DROP EACH EYE AT BEDTIME
  13. LATANOPROST [Concomitant]
     Indication: GLAUCOMA
  14. FOLIC ACID [Concomitant]
     Indication: PRODUCT USED FOR UNKNOWN INDICATION
  15. AZOPT [Concomitant]
     Indication: UVEITIS
     Dosage: 1 DROP EACH EYE 3 TIMES DAILY
  16. AZOPT [Concomitant]
     Indication: GLAUCOMA
  17. BRIMONIDINE [Concomitant]
     Indication: UVEITIS
     Dosage: 1 DROP EACH EYE 3 TIMES DAILY
  18. BRIMONIDINE [Concomitant]
     Indication: GLAUCOMA
  19. PRED FORTE [Concomitant]
     Indication: UVEITIS
     Dosage: 1 DROP EACH EYE 3 TIMES DAILY
  20. PRED FORTE [Concomitant]
     Indication: GLAUCOMA
  21. ALBUTEROL [Concomitant]
     Indication: ASTHMA

REACTIONS (5)
  - Oedema [Not Recovered/Not Resolved]
  - Injection site pain [Not Recovered/Not Resolved]
  - Pain [Not Recovered/Not Resolved]
  - Drug effect decreased [Not Recovered/Not Resolved]
  - Local swelling [Recovered/Resolved]
